FAERS Safety Report 7436011-1 (Version None)
Quarter: 2011Q2

REPORT INFORMATION
  Report Type: 
  Country: None (occurrence: None)
  Receive Date: 20110425
  Receipt Date: 20090616
  Transmission Date: 20111010
  Serious: Yes (Other)
  Sender: FDA-Public Use
  Company Number: DE-GENENTECH-317018

PATIENT
  Sex: Female

DRUGS (1)
  1. LUCENTIS [Suspect]
     Indication: MACULAR DEGENERATION
     Dosage: UNK
     Route: 031
     Dates: start: 20080303

REACTIONS (7)
  - RESPIRATORY DISORDER [None]
  - EYE DISORDER [None]
  - INJECTION SITE PAIN [None]
  - VISUAL IMPAIRMENT [None]
  - VISION BLURRED [None]
  - VISUAL ACUITY REDUCED [None]
  - NASOPHARYNGITIS [None]
